FAERS Safety Report 7236371-0 (Version None)
Quarter: 2010Q4

REPORT INFORMATION
  Report Type: 
  Country: None (occurrence: None)
  Receive Date: 20101130
  Receipt Date: 20091217
  Transmission Date: 20110411
  Serious: Yes (Hospitalization, Other)
  Sender: FDA-Public Use
  Company Number: 2009BH018627

PATIENT
  Age: 18 Month
  Sex: Male

DRUGS (3)
  1. ADVATE [Suspect]
     Indication: FACTOR VIII DEFICIENCY
     Dosage: 500 IU;AS NEEDED;IV
     Route: 042
     Dates: start: 20090601, end: 20091201
  2. TYLENOL-500 [Concomitant]
  3. CODEINE [Concomitant]

REACTIONS (1)
  - FACTOR VIII INHIBITION [None]
